FAERS Safety Report 5585147-9 (Version None)
Quarter: 2008Q1

REPORT INFORMATION
  Report Type: 
  Country: None (occurrence: None)
  Receive Date: 20080104
  Receipt Date: 20080104
  Transmission Date: 20080703
  Serious: No
  Sender: FDA-Public Use
  Company Number: None

PATIENT

DRUGS (5)
  1. CEDAX [Suspect]
     Indication: EAR DISORDER
     Dosage: TAKE ONE CAPSULE BY MOUTH  ONE DAY  BUCCAL
     Route: 002
  2. CEDAX [Suspect]
     Indication: RESPIRATORY TRACT INFECTION
     Dosage: TAKE ONE CAPSULE BY MOUTH  ONE DAY  BUCCAL
     Route: 002
  3. CEDAX [Suspect]
     Indication: SINUS DISORDER
     Dosage: TAKE ONE CAPSULE BY MOUTH  ONE DAY  BUCCAL
     Route: 002
  4. CEFDINIR [Suspect]
     Indication: COUGH
     Dosage: TAKE TWO CAPSULES BY MOUTH  ONE DAY  BUCCAL
     Route: 002
  5. CEFDINIR [Suspect]
     Indication: RESPIRATORY TRACT INFECTION
     Dosage: TAKE TWO CAPSULES BY MOUTH  ONE DAY  BUCCAL
     Route: 002

REACTIONS (1)
  - UNEVALUABLE EVENT [None]
